FAERS Safety Report 14016034 (Version 1)
Quarter: 2017Q3

REPORT INFORMATION
  Report Type: Spontaneous
  Country: US (occurrence: US)
  Receive Date: 20170927
  Receipt Date: 20170927
  Transmission Date: 20171128
  Serious: No
  Sender: FDA-Public Use
  Company Number: US-DEPOMED, INC.-US-2017DEP001096

PATIENT

DRUGS (1)
  1. GRALISE [Suspect]
     Active Substance: GABAPENTIN
     Indication: ARTHRALGIA
     Dosage: 1200 MG, QD
     Route: 048
     Dates: start: 20170310

REACTIONS (2)
  - Drug ineffective for unapproved indication [Unknown]
  - Drug dose titration not performed [Unknown]

NARRATIVE: CASE EVENT DATE: 20170310
